FAERS Safety Report 9089676 (Version 2)
Quarter: 2013Q1

REPORT INFORMATION
  Report Type: Spontaneous
  Country: US (occurrence: US)
  Receive Date: 20130201
  Receipt Date: 20130311
  Transmission Date: 20140127
  Serious: No
  Sender: FDA-Public Use
  Company Number: US-PFIZER INC-2013040911

PATIENT
  Age: 59 Year
  Sex: Male
  Weight: 70 kg

DRUGS (6)
  1. CHANTIX [Suspect]
     Indication: SMOKING CESSATION THERAPY
     Dosage: UNK
     Route: 048
     Dates: start: 20130115
  2. ATORVASTATIN CALCIUM [Suspect]
     Dosage: 20 MG, 1X/DAY
     Route: 048
     Dates: start: 20130115
  3. EDARBYCLOR [Suspect]
     Indication: HYPERTENSION
     Dosage: 20/6.25MG, 1X/DAY
     Route: 048
     Dates: start: 20130114
  4. FISH OIL [Concomitant]
     Dosage: UNK
  5. CALCIUM [Concomitant]
     Dosage: UNK
  6. VITAMIN D [Concomitant]
     Dosage: UNK

REACTIONS (1)
  - Gastric disorder [Unknown]
